FAERS Safety Report 7388880-1 (Version None)
Quarter: 2011Q1

REPORT INFORMATION
  Report Type: 
  Country: None (occurrence: None)
  Receive Date: 20110329
  Receipt Date: 20110329
  Transmission Date: 20110831
  Serious: Yes (Hospitalization)
  Sender: FDA-Public Use
  Company Number: None

PATIENT
  Age: 89 Year
  Sex: Female
  Weight: 71.8 kg

DRUGS (1)
  1. SPIRONOLACTONE [Suspect]
     Indication: CARDIAC FAILURE CONGESTIVE
     Dosage: 12.5 EVERY DAY PO
     Route: 048
     Dates: start: 20100607, end: 20110217

REACTIONS (3)
  - ANGINA PECTORIS [None]
  - HYPERKALAEMIA [None]
  - FIBRIN D DIMER INCREASED [None]
